FAERS Safety Report 8780164 (Version 1)
Quarter: 2012Q4

REPORT INFORMATION
  Report Type: Spontaneous
  Country: US (occurrence: None)
  Receive Date: 20120831
  Receipt Date: 20120831
  Transmission Date: 20130627
  Serious: Yes (Other)
  Sender: FDA-Public Use
  Company Number: None

PATIENT
  Age: 49 Year
  Sex: Female
  Weight: 96.16 kg

DRUGS (2)
  1. NYSTATIN [Suspect]
     Dosage: 2 teaspoons, 3 times a day
     Dates: start: 20110926
  2. NYSTATIN [Suspect]
     Indication: ORAL THRUSH
     Dosage: 2 teaspoons, 3 times a day
     Dates: start: 20110926

REACTIONS (1)
  - No adverse event [None]
